FAERS Safety Report 10455762 (Version 1)
Quarter: 2014Q3

REPORT INFORMATION
  Report Type: Spontaneous
  Country: US (occurrence: None)
  Receive Date: 20140818
  Receipt Date: 20140818
  Transmission Date: 20150326
  Serious: Yes (Other)
  Sender: FDA-Public Use
  Company Number: 20111207VANCO2500

PATIENT
  Age: 67 Year
  Sex: Male

DRUGS (10)
  1. BETA BLOCKER (BETA BLOCKING AGENTS) [Concomitant]
     Active Substance: UNSPECIFIED INGREDIENT
  2. ANGIOTENSION CONVERTING ENZYME INHIBITOR [Concomitant]
  3. ZOSYN (PIP/TAZO) [Suspect]
     Active Substance: PIPERACILLIN SODIUM\TAZOBACTAM SODIUM
     Indication: OSTEOMYELITIS
     Dates: start: 20111020, end: 20111024
  4. SAXAGLIPTIN (SAXAGLIPTIN) [Concomitant]
  5. METFORMIN HCL (METFORMIN HYDROCHLORIDE) [Concomitant]
  6. NOVOLOG [Concomitant]
     Active Substance: INSULIN ASPART
  7. DIURETICS (DIURETICS) [Concomitant]
  8. VANCOCIN [Suspect]
     Active Substance: VANCOMYCIN HYDROCHLORIDE
     Indication: OSTEOMYELITIS
     Dates: start: 20111020, end: 20111024
  9. STATIN (NYSTATIN) [Concomitant]
  10. PLACEBO [Concomitant]
     Active Substance: UNSPECIFIED INGREDIENT

REACTIONS (1)
  - Renal failure [None]

NARRATIVE: CASE EVENT DATE: 20111024
